FAERS Safety Report 4821966-1 (Version None)
Quarter: 2005Q4

REPORT INFORMATION
  Report Type: 
  Country: None (occurrence: None)
  Receive Date: 20051103
  Receipt Date: 20051025
  Transmission Date: 20060501
  Serious: Yes (Death)
  Sender: FDA-Public Use
  Company Number: 2005146952

PATIENT
  Age: 74 Year
  Sex: Male

DRUGS (12)
  1. PREDNISOLONE [Suspect]
     Indication: ILL-DEFINED DISORDER
     Dosage: 5 MG (5 MG, 1 IN 1 D), ORAL
     Route: 048
  2. TIOTROPIUM BROMIDE                         (TIOTROPIUM BROMIDE) [Suspect]
     Indication: ILL-DEFINED DISORDER
     Dosage: 18 MCG (18 MCG, 1 IN 1 D), INHALATION
     Route: 055
  3. AMITRIPTYLINE HCL [Suspect]
     Indication: ILL-DEFINED DISORDER
     Dosage: 25 MG (25 MG, 1 IN 1 D), ORAL
     Route: 048
  4. CLARITHROMYCIN [Suspect]
     Indication: ILL-DEFINED DISORDER
     Dosage: 500 MG (250 MG, 2 IN 1 D), ORAL
     Route: 048
  5. MENTHOL          (MENTHOL) [Suspect]
     Indication: ILL-DEFINED DISORDER
     Dosage: (4 IN 1 D), INHALATION
     Route: 055
  6. OXYGEN                 (OXYGEN) [Suspect]
     Indication: ILL-DEFINED DISORDER
     Dosage: INHALATION
     Route: 055
  7. PARACETAMOL                  (PARACETAMOL) [Concomitant]
  8. ALBUTEROL [Concomitant]
  9. FLUTICASONE                    (FLUTICAOSNE) [Concomitant]
  10. SUMATRIPTAN             (SUMATRIPTAN) [Concomitant]
  11. VERAPAMIL [Concomitant]
  12. EUCALIPTUS OIL           (EUCALYPTUS OIL) [Concomitant]

REACTIONS (2)
  - CHRONIC OBSTRUCTIVE PULMONARY DISEASE [None]
  - LOWER RESPIRATORY TRACT INFECTION [None]
